FAERS Safety Report 7780210-6 (Version None)
Quarter: 2011Q3

REPORT INFORMATION
  Report Type: 
  Country: None (occurrence: None)
  Receive Date: 20110927
  Receipt Date: 20110927
  Transmission Date: 20111222
  Serious: Yes (Congenital Anomaly, Other)
  Sender: FDA-Public Use
  Company Number: None

PATIENT
  Age: 45 Year
  Sex: Male
  Weight: 78.925 kg

DRUGS (1)
  1. PREDNISONE [Suspect]
     Indication: HYPERSENSITIVITY
     Route: 065
     Dates: start: 20110821, end: 20110904

REACTIONS (2)
  - HERPES ZOSTER [None]
  - RASH [None]
